FAERS Safety Report 19634875 (Version 1)
Quarter: 2021Q3

REPORT INFORMATION
  Report Type: Spontaneous
  Country: FR (occurrence: FR)
  Receive Date: 20210730
  Receipt Date: 20210730
  Transmission Date: 20211014
  Serious: Yes (Death, Other)
  Sender: FDA-Public Use
  Company Number: FR-AUROBINDO-AUR-APL-2021-032457

PATIENT
  Age: 64 Year
  Sex: Female
  Weight: 50 kg

DRUGS (5)
  1. DOBUTAMIN [Concomitant]
     Active Substance: DOBUTAMINE HYDROCHLORIDE
     Indication: PRODUCT USED FOR UNKNOWN INDICATION
     Dosage: UNK
     Route: 042
     Dates: start: 20210626, end: 20210626
  2. ASPEGIC [ACETYLSALICYLATE LYSINE] [Interacting]
     Active Substance: ASPIRIN DL-LYSINE
     Indication: ACUTE CORONARY SYNDROME
     Dosage: 250 MILLIGRAM, ONCE A DAY
     Route: 042
     Dates: start: 20210626, end: 20210626
  3. HEPARIN [Interacting]
     Active Substance: HEPARIN SODIUM
     Indication: ACUTE CORONARY SYNDROME
     Dosage: 60 INTERNATIONAL UNIT, EVERY HOUR
     Route: 042
     Dates: start: 20210626, end: 20210627
  4. CLOPIDOGREL [Suspect]
     Active Substance: CLOPIDOGREL BISULFATE
     Indication: ACUTE CORONARY SYNDROME
     Dosage: 150 MILLIGRAM, ONCE A DAY
     Route: 048
     Dates: start: 20210626, end: 20210626
  5. NOREPINEPHRINE. [Concomitant]
     Active Substance: NOREPINEPHRINE
     Indication: PRODUCT USED FOR UNKNOWN INDICATION
     Dosage: UNK
     Route: 042
     Dates: start: 20210626, end: 20210627

REACTIONS (1)
  - Shock haemorrhagic [Fatal]

NARRATIVE: CASE EVENT DATE: 20210626
